FAERS Safety Report 13498338 (Version 1)
Quarter: 2017Q2

REPORT INFORMATION
  Report Type: Spontaneous
  Country: US (occurrence: US)
  Receive Date: 20170430
  Receipt Date: 20170430
  Transmission Date: 20170830
  Serious: Yes (Hospitalization)
  Sender: FDA-Public Use
  Company Number: US-ELI_LILLY_AND_COMPANY-US201704011196

PATIENT
  Sex: Female

DRUGS (4)
  1. HUMALOG MIX75/25 [Suspect]
     Active Substance: INSULIN LISPRO
     Indication: TYPE 2 DIABETES MELLITUS
     Dosage: 75 U, EACH MORNING
     Route: 065
     Dates: start: 2013
  2. HUMALOG MIX75/25 [Suspect]
     Active Substance: INSULIN LISPRO
     Dosage: 75 U, EACH MORNING
     Route: 065
  3. HUMALOG MIX75/25 [Suspect]
     Active Substance: INSULIN LISPRO
     Dosage: 70 U, EACH EVENING
     Route: 065
     Dates: start: 2013
  4. HUMALOG MIX75/25 [Suspect]
     Active Substance: INSULIN LISPRO
     Dosage: 70 U, EACH EVENING
     Route: 065

REACTIONS (1)
  - Pneumonia [Recovered/Resolved]
